FAERS Safety Report 4701414-2 (Version None)
Quarter: 2005Q2

REPORT INFORMATION
  Report Type: 
  Country: None (occurrence: None)
  Receive Date: 20050627
  Receipt Date: 20050616
  Transmission Date: 20051028
  Serious: Yes (Hospitalization)
  Sender: FDA-Public Use
  Company Number: 2005-06-1003

PATIENT
  Age: 45 Year
  Sex: Male

DRUGS (2)
  1. TEMODAL [Suspect]
     Indication: GLIOBLASTOMA
     Dosage: 150 MG/M2 ORAL
     Route: 048
     Dates: start: 20050425, end: 20050501
  2. RADIATION THERAPY [Concomitant]

REACTIONS (4)
  - CNS VENTRICULITIS [None]
  - ENCEPHALITIS [None]
  - NAUSEA [None]
  - TREATMENT NONCOMPLIANCE [None]
